FAERS Safety Report 4434112-3 (Version None)
Quarter: 2004Q3

REPORT INFORMATION
  Report Type: 
  Country: None (occurrence: None)
  Receive Date: 20040825
  Receipt Date: 20040810
  Transmission Date: 20050211
  Serious: Yes (Life-Threatening)
  Sender: FDA-Public Use
  Company Number: 04P-056-0270236-00

PATIENT
  Age: 74 Year
  Sex: Male

DRUGS (6)
  1. ISOPTIN [Suspect]
     Dosage: 60 MG, 2 IN 1 D, PER ORAL
     Route: 048
     Dates: start: 20040124
  2. ACETYLSALICYLATE LYSINE [Suspect]
     Dosage: 250 MG, 1 IN 1 D, PER ORAL
     Route: 048
     Dates: start: 20040126
  3. HEPARIN-FRACTION, SODIUM SALT [Suspect]
     Dosage: 40 MG, 1 IN 1 D, SUBCUTANEOUS
     Route: 058
     Dates: start: 20040125, end: 20040126
  4. TIROFIBAN HYDROCHLORIDE [Suspect]
     Dosage: INTRAVENOUS
     Route: 042
     Dates: start: 20040127, end: 20040127
  5. CLOPIDOGREL BISULFATE [Suspect]
     Dosage: 1 IN 1 D, PER ORAL
     Route: 048
     Dates: start: 20040127
  6. RAMIPRIL [Suspect]
     Dosage: 1.25 MG, 1 IN 1 D,
     Dates: start: 20040121

REACTIONS (1)
  - THROMBOCYTOPENIA [None]
